FAERS Safety Report 13212370 (Version 1)
Quarter: 2017Q1

REPORT INFORMATION
  Report Type: Spontaneous
  Country: CA (occurrence: CA)
  Receive Date: 20170210
  Receipt Date: 20170210
  Transmission Date: 20170428
  Serious: Yes (Other)
  Sender: FDA-Public Use
  Company Number: CA-TEVA-739285ACC

PATIENT
  Sex: Female

DRUGS (9)
  1. OMEPRAZOLE. [Suspect]
     Active Substance: OMEPRAZOLE
     Indication: GASTROOESOPHAGEAL REFLUX DISEASE
     Dosage: 20 MILLIGRAM DAILY;
     Route: 048
  2. ATACAND [Concomitant]
     Active Substance: CANDESARTAN CILEXETIL
  3. NORVASC [Concomitant]
     Active Substance: AMLODIPINE BESYLATE
  4. ATACAND [Concomitant]
     Active Substance: CANDESARTAN CILEXETIL
  5. ATIVAN [Concomitant]
     Active Substance: LORAZEPAM
  6. HCTZ [Concomitant]
     Active Substance: HYDROCHLOROTHIAZIDE
  7. HYDROCHLOROTHIAZIDE. [Concomitant]
     Active Substance: HYDROCHLOROTHIAZIDE
  8. PARIET [Suspect]
     Active Substance: RABEPRAZOLE SODIUM
     Indication: GASTROOESOPHAGEAL REFLUX DISEASE
     Dosage: 20 MILLIGRAM DAILY;
     Route: 048
  9. ASA [Concomitant]
     Active Substance: ASPIRIN

REACTIONS (5)
  - Gingival ulceration [Recovered/Resolved]
  - Tongue ulceration [Recovered/Resolved]
  - Gastrointestinal erosion [Recovered/Resolved]
  - Glossitis [Recovered/Resolved]
  - Hiatus hernia [Recovered/Resolved]
